FAERS Safety Report 9325174 (Version 3)
Quarter: 2013Q3

REPORT INFORMATION
  Report Type: Spontaneous
  Country: JP (occurrence: JP)
  Receive Date: 20130604
  Receipt Date: 20130802
  Transmission Date: 20140515
  Serious: Yes (Other)
  Sender: FDA-Public Use
  Company Number: JP-B.I. PHARMACEUTICALS,INC./RIDGEFIELD-2013-BI-15345NB

PATIENT
  Age: 87 Year
  Sex: Female
  Weight: 47.4 kg

DRUGS (12)
  1. TRAZENTA [Suspect]
     Indication: TYPE 2 DIABETES MELLITUS
     Dosage: 5 MG
     Route: 048
     Dates: start: 20130501, end: 20130515
  2. OLMETEC [Concomitant]
     Indication: HYPERTENSION
     Dosage: 20 MG
     Route: 048
     Dates: start: 20090527
  3. BUFFERIN [Concomitant]
     Indication: CEREBRAL INFARCTION
     Dosage: 81 MG
     Route: 048
     Dates: start: 20010404
  4. CALBLOCK [Concomitant]
     Indication: HYPERTENSION
     Dosage: 8 MG
     Route: 048
     Dates: start: 20050423
  5. MEVALOTIN [Concomitant]
     Indication: HYPERLIPIDAEMIA
     Dosage: 5 MG
     Route: 048
     Dates: start: 20070815
  6. PERSANTIN [Concomitant]
     Indication: ANGINA PECTORIS
     Dosage: 75 MG
     Route: 048
     Dates: start: 19880604
  7. METHYCOBAL [Concomitant]
     Indication: SPINAL OSTEOARTHRITIS
     Dosage: 1500 MG
     Route: 048
     Dates: start: 20060421
  8. SUREPOST [Concomitant]
     Indication: TYPE 2 DIABETES MELLITUS
     Dosage: 0.75 MG
     Route: 065
     Dates: start: 20130409
  9. ALFAROL [Concomitant]
     Route: 065
     Dates: start: 20010404
  10. HALFDIGOXIN [Concomitant]
     Dosage: 0.125 MG
     Route: 065
     Dates: start: 20080618
  11. SEDAGASTON [Concomitant]
     Dosage: 2 G
     Dates: start: 20100714
  12. GLIMEPIRIDE [Concomitant]
     Dosage: 1 MG

REACTIONS (1)
  - Pancreatitis acute [Recovered/Resolved]
